FAERS Safety Report 20798059 (Version 1)
Quarter: 2022Q2

REPORT INFORMATION
  Report Type: Report from Study
  Country: MX (occurrence: MX)
  Receive Date: 20220506
  Receipt Date: 20220506
  Transmission Date: 20220720
  Serious: Yes (Hospitalization, Disabling)
  Sender: FDA-Public Use
  Company Number: MX-ABBOTT-2022A-1348398

PATIENT
  Age: 70 Year
  Sex: Female
  Weight: 43 kg

DRUGS (4)
  1. CREON [Suspect]
     Active Substance: PANCRELIPASE AMYLASE\PANCRELIPASE LIPASE\PANCRELIPASE PROTEASE
     Indication: Diarrhoea
     Dosage: 300 MG TWICE A DAY; DOSE OF ONE CAPSULE IN THE MORNING AND ONE AT NIGHT.
     Route: 048
     Dates: start: 20200908, end: 202012
  2. CREON [Suspect]
     Active Substance: PANCRELIPASE AMYLASE\PANCRELIPASE LIPASE\PANCRELIPASE PROTEASE
     Dosage: 300 MG TWICE A DAY; DOSE OF ONE CAPSULE IN THE MORNING AND ONE AT NIGHT.
     Route: 048
     Dates: start: 202103
  3. CREON [Suspect]
     Active Substance: PANCRELIPASE AMYLASE\PANCRELIPASE LIPASE\PANCRELIPASE PROTEASE
     Dosage: THREE CAPSULES A DAY, ONE IN THE MORNING, ANOTHER AT NOON AND ONE MORE AT NIGHT.
     Route: 048
  4. TRAZIL [Concomitant]
     Indication: Eye disorder
     Dosage: SHE COMMENTED THAT DROPS ARE EVERY 4 HOURS BUT SHE PUTS THEM ON EVERY 3 HOURS
     Route: 047

REACTIONS (8)
  - Blindness [Not Recovered/Not Resolved]
  - Pancreatic mass [Unknown]
  - Pancreatic operation [Unknown]
  - Ocular discomfort [Unknown]
  - Foreign body sensation in eyes [Unknown]
  - Retinal deposits [Unknown]
  - Eye infection [Recovering/Resolving]
  - Product use in unapproved indication [Unknown]

NARRATIVE: CASE EVENT DATE: 20200908
